FAERS Safety Report 7356306-X (Version None)
Quarter: 2011Q1

REPORT INFORMATION
  Report Type: 
  Country: None (occurrence: None)
  Receive Date: 20110316
  Receipt Date: 20110121
  Transmission Date: 20110831
  Serious: Yes (Hospitalization, Other)
  Sender: FDA-Public Use
  Company Number: US-BAYER-2011-023033

PATIENT
  Weight: 70.295 kg

DRUGS (3)
  1. YAZ [Suspect]
  2. YASMIN [Suspect]
     Dosage: UNK
     Dates: start: 20010101, end: 20070101
  3. OCELLA [Suspect]
     Dosage: UNK
     Dates: start: 20060101, end: 20100101

REACTIONS (1)
  - CHOLECYSTECTOMY [None]
